FAERS Safety Report 5621163-6 (Version None)
Quarter: 2008Q1

REPORT INFORMATION
  Report Type: 
  Country: None (occurrence: None)
  Receive Date: 20080114
  Receipt Date: 20061130
  Transmission Date: 20080703
  Serious: Yes (Hospitalization)
  Sender: FDA-Public Use
  Company Number: A03200607268

PATIENT
  Age: 75 Year
  Sex: Male

DRUGS (7)
  1. PLAVIX [Suspect]
     Indication: THROMBOSIS
     Dosage: ORAL
     Route: 048
     Dates: end: 20051101
  2. WARFARIN SODIUM [Suspect]
     Indication: THROMBOSIS
     Dosage: ORAL
     Route: 048
     Dates: end: 20051101
  3. VERAPAMIL [Concomitant]
  4. METOPROLOL SUCCINATE [Concomitant]
  5. FISH OIL [Concomitant]
  6. VITAMINS [Concomitant]
  7. GLYCERYL TRINITRATE [Concomitant]

REACTIONS (1)
  - HAEMORRHAGIC STROKE [None]
